FAERS Safety Report 20047916 (Version 1)
Quarter: 2021Q4

REPORT INFORMATION
  Report Type: Spontaneous
  Country: US (occurrence: US)
  Receive Date: 20211109
  Receipt Date: 20211109
  Transmission Date: 20220304
  Serious: Yes (Death, Other)
  Sender: FDA-Public Use
  Company Number: US-GLAXOSMITHKLINE-US2021GSK230732

PATIENT
  Sex: Male

DRUGS (8)
  1. RANITIDINE [Suspect]
     Active Substance: RANITIDINE
     Indication: Abdominal discomfort
     Dosage: UNK, QD
     Route: 065
     Dates: start: 201401, end: 201512
  2. RANITIDINE [Suspect]
     Active Substance: RANITIDINE
     Indication: Constipation
  3. RANITIDINE [Suspect]
     Active Substance: RANITIDINE
     Indication: Abdominal discomfort
     Dosage: UNK, QD
     Route: 065
     Dates: start: 201401, end: 201512
  4. RANITIDINE [Suspect]
     Active Substance: RANITIDINE
     Indication: Constipation
  5. RANITIDINE [Suspect]
     Active Substance: RANITIDINE
     Indication: Abdominal discomfort
     Dosage: UNK, QD
     Route: 065
     Dates: start: 201401, end: 201512
  6. RANITIDINE [Suspect]
     Active Substance: RANITIDINE
     Indication: Constipation
  7. RANITIDINE [Suspect]
     Active Substance: RANITIDINE
     Indication: Abdominal discomfort
     Dosage: UNK, QD
     Route: 065
     Dates: start: 201401, end: 201512
  8. RANITIDINE [Suspect]
     Active Substance: RANITIDINE
     Indication: Constipation

REACTIONS (3)
  - Colorectal cancer [Unknown]
  - Hepatic cancer [Unknown]
  - Neoplasm malignant [Fatal]
